FAERS Safety Report 10219068 (Version 2)
Quarter: 2014Q2

REPORT INFORMATION
  Report Type: Report from Study
  Country: JP (occurrence: JP)
  Receive Date: 20140605
  Receipt Date: 20140605
  Transmission Date: 20141212
  Serious: Yes (Death, Life-Threatening, Hospitalization)
  Sender: FDA-Public Use
  Company Number: JP-SA-THYM-1003819

PATIENT
  Age: 8 Year
  Sex: Male
  Weight: 32.2 kg

DRUGS (29)
  1. THYMOGLOBULINE [Suspect]
     Indication: ACUTE GRAFT VERSUS HOST DISEASE
     Dosage: UNK
     Route: 042
     Dates: start: 20130403, end: 20130407
  2. SOLDEM 1 [Concomitant]
     Dates: start: 20130403, end: 20130422
  3. MAGNESIUM SULFATE [Concomitant]
     Indication: HYPOMAGNESAEMIA
     Dates: start: 20130403, end: 20130405
  4. ATARAX-P [Concomitant]
     Indication: ALLERGY PROPHYLAXIS
     Dates: start: 20130403, end: 20130422
  5. SOLITA-T NO.2 [Concomitant]
     Dates: start: 20130403, end: 20130425
  6. HEPARIN SODIUM [Concomitant]
     Dates: start: 20130403, end: 20130425
  7. CEFMETAZON [Concomitant]
     Indication: INFECTION PROPHYLAXIS
     Dates: start: 20130403, end: 20130425
  8. MORPHINE HYDROCHLORIDE [Concomitant]
     Indication: ACUTE MYELOID LEUKAEMIA
     Dates: start: 20130222, end: 20130425
  9. GLUCOSE INJECTION [Concomitant]
     Indication: ACUTE MYELOID LEUKAEMIA
     Dates: start: 20130406, end: 20130425
  10. FAMOTIDINE [Concomitant]
     Indication: PROPHYLAXIS AGAINST GASTROINTESTINAL ULCER
     Dates: start: 20130406, end: 20130425
  11. SOL-MELCORT [Concomitant]
     Indication: PROPHYLAXIS AGAINST GRAFT VERSUS HOST DISEASE
     Dates: start: 20130220, end: 20130425
  12. POTASSIUM CHLORIDE [Concomitant]
     Indication: HYPOKALAEMIA
     Dates: start: 20130408, end: 20130425
  13. PROGRAF [Concomitant]
     Indication: PROPHYLAXIS AGAINST GRAFT VERSUS HOST DISEASE
     Dates: start: 20130409, end: 20130425
  14. DENOSINE [Concomitant]
     Indication: ANTIVIRAL PROPHYLAXIS
     Dates: start: 20130412, end: 20130415
  15. SOLDEM 3A [Concomitant]
     Indication: ACUTE MYELOID LEUKAEMIA
     Dates: start: 20130418, end: 20130422
  16. CEFEPIME [Concomitant]
     Indication: ANTIBIOTIC PROPHYLAXIS
     Dates: start: 20130416, end: 20130421
  17. FUNGUARD [Concomitant]
     Indication: ANTIFUNGAL PROPHYLAXIS
     Dates: start: 20130416, end: 20130425
  18. FOSCAVIR [Concomitant]
     Indication: ANTIVIRAL PROPHYLAXIS
     Dates: start: 20130419, end: 20130425
  19. ANTHROBIN P [Concomitant]
     Indication: PROPHYLAXIS
     Dates: end: 20130425
  20. MEROPEN [Concomitant]
     Indication: ANTIBIOTIC PROPHYLAXIS
     Dates: start: 20130421, end: 20130425
  21. SAXIZON [Concomitant]
     Indication: PROPHYLAXIS
     Dates: end: 20130421
  22. BAKTAR [Concomitant]
     Indication: ANTIFUNGAL PROPHYLAXIS
     Dates: end: 20130425
  23. URSO [Concomitant]
     Indication: PROPHYLAXIS
     Dates: end: 20130425
  24. CALONAL [Concomitant]
     Indication: ACUTE MYELOID LEUKAEMIA
     Dates: end: 20130425
  25. SODIUM ALGINATE [Concomitant]
     Indication: PROPHYLAXIS AGAINST GASTROINTESTINAL ULCER
     Dates: start: 20130420, end: 20130423
  26. CELLCEPT [Concomitant]
     Indication: PROPHYLAXIS AGAINST GRAFT VERSUS HOST DISEASE
     Dates: start: 20130327, end: 20130408
  27. FLUCONAZOLE [Concomitant]
     Indication: ANTIFUNGAL PROPHYLAXIS
     Dates: end: 20130416
  28. POLYMYXIN B SULFATE [Concomitant]
     Indication: ANTIBIOTIC PROPHYLAXIS
     Dates: end: 20130419
  29. BACCIDAL [Concomitant]
     Indication: ANTIBIOTIC PROPHYLAXIS
     Dates: end: 20130419

REACTIONS (5)
  - Epstein-Barr virus associated lymphoproliferative disorder [Fatal]
  - Disseminated intravascular coagulation [Not Recovered/Not Resolved]
  - Hepatic function abnormal [Not Recovered/Not Resolved]
  - Bone marrow failure [Not Recovered/Not Resolved]
  - Decreased appetite [Not Recovered/Not Resolved]
